FAERS Safety Report 4731658-5 (Version None)
Quarter: 2005Q3

REPORT INFORMATION
  Report Type: 
  Country: None (occurrence: None)
  Receive Date: 20050725
  Receipt Date: 20041214
  Transmission Date: 20060218
  Serious: Yes (Life-Threatening, Hospitalization, Disabling)
  Sender: FDA-Public Use
  Company Number: WAES 0412USA01785

PATIENT
  Age: 32 Year
  Sex: Female

DRUGS (4)
  1. VIOXX [Suspect]
     Indication: BACK PAIN
     Dosage: PO
     Route: 048
     Dates: start: 20020730, end: 20040101
  2. VIOXX [Suspect]
     Indication: SHOULDER PAIN
     Dosage: PO
     Route: 048
     Dates: start: 20020730, end: 20040101
  3. LORTAB [Concomitant]
  4. PERCOCET [Concomitant]

REACTIONS (3)
  - DRUG EXPOSURE DURING PREGNANCY [None]
  - HYPERTENSION [None]
  - OEDEMA PERIPHERAL [None]
